FAERS Safety Report 15514667 (Version 2)
Quarter: 2018Q4

REPORT INFORMATION
  Report Type: Spontaneous
  Country: US (occurrence: US)
  Receive Date: 20181016
  Receipt Date: 20181024
  Transmission Date: 20190205
  Serious: Yes (Other)
  Sender: FDA-Public Use
  Company Number: US-JNJFOC-20181012416

PATIENT

DRUGS (1)
  1. EVICEL [Suspect]
     Active Substance: FIBRINOGEN HUMAN\THROMBIN HUMAN
     Indication: TISSUE SEALING
     Route: 061

REACTIONS (5)
  - Off label use [Unknown]
  - Cerebrospinal fluid leakage [Unknown]
  - Wound infection [Unknown]
  - Pseudomeningocele [Unknown]
  - Drug ineffective for unapproved indication [Unknown]
